FAERS Safety Report 16645167 (Version 1)
Quarter: 2019Q3

REPORT INFORMATION
  Report Type: Other
  Country: ES (occurrence: ES)
  Receive Date: 20190729
  Receipt Date: 20190729
  Transmission Date: 20191004
  Serious: Yes (Hospitalization)
  Sender: FDA-Public Use
  Company Number: ES-INCYTE CORPORATION-2019IN007436

PATIENT

DRUGS (3)
  1. CELLCEPT [Suspect]
     Active Substance: MYCOPHENOLATE MOFETIL\MYCOPHENOLATE MOFETIL HYDROCHLORIDE
     Indication: PROPHYLAXIS AGAINST GRAFT VERSUS HOST DISEASE
     Dosage: 500 MG, Q12H
     Route: 048
     Dates: start: 20180401
  2. JAKAVI [Suspect]
     Active Substance: RUXOLITINIB
     Indication: HODGKIN^S DISEASE
     Dosage: 10 MG, Q24H
     Route: 048
     Dates: start: 20181201, end: 20190103
  3. SIROLIMUS. [Suspect]
     Active Substance: SIROLIMUS
     Indication: PROPHYLAXIS AGAINST GRAFT VERSUS HOST DISEASE
     Dosage: UNK
     Route: 048

REACTIONS (1)
  - Cholecystitis infective [Recovered/Resolved]

NARRATIVE: CASE EVENT DATE: 20190103
